FAERS Safety Report 7767191-6 (Version None)
Quarter: 2011Q3

REPORT INFORMATION
  Report Type: 
  Country: None (occurrence: None)
  Receive Date: 20110922
  Receipt Date: 20110207
  Transmission Date: 20111222
  Serious: No
  Sender: FDA-Public Use
  Company Number: US-ASTRAZENECA-2011SE07376

PATIENT
  Age: 62 Year
  Sex: Female

DRUGS (2)
  1. PRISTIQ [Suspect]
     Route: 065
  2. SEROQUEL [Suspect]
     Route: 048

REACTIONS (2)
  - MALAISE [None]
  - GASTRIC DISORDER [None]
